FAERS Safety Report 6504117-7 (Version None)
Quarter: 2009Q4

REPORT INFORMATION
  Report Type: 
  Country: None (occurrence: None)
  Receive Date: 20091217
  Receipt Date: 20091209
  Transmission Date: 20100525
  Serious: Yes (Hospitalization)
  Sender: FDA-Public Use
  Company Number: FR-ABBOTT-09P-056-0609530-00

PATIENT
  Sex: Female

DRUGS (11)
  1. NAXY [Suspect]
     Indication: TOOTHACHE
     Route: 048
     Dates: start: 20091026
  2. PARACETAMOL [Suspect]
     Indication: TOOTHACHE
     Route: 048
     Dates: start: 20091026, end: 20091028
  3. PARACETAMOL [Suspect]
     Dates: start: 20091029, end: 20091029
  4. PROPOFAN [Suspect]
     Indication: TOOTHACHE
     Route: 048
     Dates: start: 20091020, end: 20091025
  5. LAMALINE [Suspect]
     Indication: TOOTHACHE
     Dosage: 4 DOSAGE FORMS
     Route: 048
     Dates: start: 20091029, end: 20091029
  6. CLAMOXYL [Suspect]
     Indication: TOOTHACHE
     Route: 048
     Dates: start: 20091020, end: 20091025
  7. SOLUPRED [Suspect]
     Indication: TOOTHACHE
     Route: 048
     Dates: start: 20091020, end: 20091025
  8. LORATADINE [Suspect]
     Indication: TOOTHACHE
     Dates: start: 20091026
  9. CERAT [Suspect]
     Indication: TOOTHACHE
     Dates: start: 20091026
  10. OPIUM [Suspect]
     Indication: TOOTHACHE
     Dates: start: 20091029
  11. CAFFEINE [Suspect]
     Indication: TOOTHACHE
     Dates: start: 20091029

REACTIONS (3)
  - CONDITION AGGRAVATED [None]
  - RASH ERYTHEMATOUS [None]
  - TOXIC SKIN ERUPTION [None]
